FAERS Safety Report 21419277 (Version 4)
Quarter: 2022Q4

REPORT INFORMATION
  Report Type: Spontaneous
  Country: US (occurrence: US)
  Receive Date: 20221006
  Receipt Date: 20221110
  Transmission Date: 20230113
  Serious: Yes (Other)
  Sender: FDA-Public Use
  Company Number: US-PFIZER INC-PV202200076492

PATIENT
  Age: 91 Year
  Sex: Female

DRUGS (3)
  1. ESTRING [Suspect]
     Active Substance: ESTRADIOL
     Indication: Genitourinary syndrome of menopause
     Dosage: UNK
  2. ESTRING [Suspect]
     Active Substance: ESTRADIOL
     Indication: Urinary tract infection
     Dosage: 2 MG, EVERY 3 MONTHS (2 MG (7.5 MCG/24 HOUR, PLACE 1 EACH VAGINALLY EVERY 3 (THREE) MONTHS)
     Route: 067
     Dates: start: 20221004
  3. ESTRING [Suspect]
     Active Substance: ESTRADIOL
     Indication: Atrophic vulvovaginitis
     Dosage: 7.5 UG, DAILY (7.5 MCG/24 HR, QUANTITY FOR 90 DAYS: 1 RING Q 90 DAYS)

REACTIONS (2)
  - Dementia [Unknown]
  - Mobility decreased [Unknown]
